FAERS Safety Report 19551712 (Version 2)
Quarter: 2022Q3

REPORT INFORMATION
  Report Type: Spontaneous
  Country: US (occurrence: US)
  Receive Date: 20210715
  Receipt Date: 20220727
  Transmission Date: 20221027
  Serious: No
  Sender: FDA-Public Use
  Company Number: US-ACCORD-225413

PATIENT
  Age: 63 Year
  Sex: Female
  Weight: 132 kg

DRUGS (3)
  1. LETROZOLE [Suspect]
     Active Substance: LETROZOLE
     Indication: Breast cancer
     Dosage: DAILY
     Route: 048
     Dates: start: 20200701, end: 20220211
  2. ATORVASTATIN [Concomitant]
     Active Substance: ATORVASTATIN
     Indication: Product used for unknown indication
     Dosage: STRENGTH: 10MG /1/2 TABLET/5MG /DAILY
     Route: 048
  3. METOPROLOL [Concomitant]
     Active Substance: METOPROLOL
     Indication: Product used for unknown indication
     Dosage: STRENGTH: 25MG

REACTIONS (11)
  - Myalgia [Unknown]
  - Arthralgia [Unknown]
  - Headache [Unknown]
  - Poor quality sleep [Recovered/Resolved]
  - Feeling abnormal [Unknown]
  - Amnesia [Unknown]
  - Alopecia [Unknown]
  - Feeling of body temperature change [Unknown]
  - Cough [Unknown]
  - Intentional dose omission [Unknown]
  - Osteoporosis [Unknown]

NARRATIVE: CASE EVENT DATE: 20200801
